FAERS Safety Report 4353873-5 (Version None)
Quarter: 2004Q2

REPORT INFORMATION
  Report Type: 
  Country: None (occurrence: None)
  Receive Date: 20040503
  Receipt Date: 20040421
  Transmission Date: 20050107
  Serious: Yes (Death, Other)
  Sender: FDA-Public Use
  Company Number: 2004210117DE

PATIENT
  Age: 56 Year
  Sex: Male

DRUGS (6)
  1. FRAGMIN [Suspect]
     Indication: THROMBOSIS PROPHYLAXIS
     Dosage: SUBCUTANEOUS
     Route: 058
     Dates: start: 20040310, end: 20040327
  2. ANTRA [Concomitant]
  3. NOVAMINSULFON-RATIOPHAM (METAMIZOLE SODIUM) [Concomitant]
  4. HYOSCINE HBR HYT [Concomitant]
  5. METOCLOPRAMIDE [Concomitant]
  6. OXYCODONE HCL [Concomitant]

REACTIONS (3)
  - DRUG INEFFECTIVE [None]
  - PHLEBOTHROMBOSIS [None]
  - PULMONARY EMBOLISM [None]
